FAERS Safety Report 19573862 (Version 1)
Quarter: 2021Q3

REPORT INFORMATION
  Report Type: Spontaneous
  Country: CA (occurrence: CA)
  Receive Date: 20210718
  Receipt Date: 20210718
  Transmission Date: 20211014
  Serious: Yes (Other)
  Sender: FDA-Public Use
  Company Number: CA-JNJFOC-20210731827

PATIENT
  Age: 59 Year
  Sex: Male

DRUGS (4)
  1. XARELTO [Suspect]
     Active Substance: RIVAROXABAN
     Indication: PRODUCT USED FOR UNKNOWN INDICATION
     Dosage: 20 MG
     Route: 048
  2. DILTIAZEM. [Suspect]
     Active Substance: DILTIAZEM
     Dosage: 30 MG, BID
  3. EDECRIN [Suspect]
     Active Substance: ETHACRYNIC ACID
     Dosage: 150 MG, BID
  4. DILTIAZEM. [Suspect]
     Active Substance: DILTIAZEM
     Dosage: 120 MG

REACTIONS (3)
  - Acute kidney injury [Unknown]
  - Polyuria [Unknown]
  - Epistaxis [Unknown]
